FAERS Safety Report 12503621 (Version 2)
Quarter: 2016Q3

REPORT INFORMATION
  Report Type: Spontaneous
  Country: RO (occurrence: RO)
  Receive Date: 20160628
  Receipt Date: 20160722
  Transmission Date: 20161109
  Serious: Yes (Death, Other)
  Sender: FDA-Public Use
  Company Number: RO-SA-2016SA118823

PATIENT
  Age: 44 Year
  Sex: Male

DRUGS (1)
  1. FABRAZYME [Suspect]
     Active Substance: AGALSIDASE BETA
     Indication: FABRY^S DISEASE
     Route: 041
     Dates: start: 201501, end: 20160615

REACTIONS (16)
  - Nephropathy [Fatal]
  - Pain [Unknown]
  - Cardiac disorder [Fatal]
  - Disease progression [Fatal]
  - Multiple organ dysfunction syndrome [Fatal]
  - Nervous system disorder [Fatal]
  - Renal disorder [Fatal]
  - Renal failure [Fatal]
  - Cornea verticillata [Unknown]
  - Sensory disturbance [Unknown]
  - Proteinuria [Fatal]
  - Hypoacusis [Unknown]
  - Angiokeratoma [Unknown]
  - Cerebrovascular accident [Unknown]
  - Hemiparesis [Unknown]
  - Paraesthesia [Unknown]

NARRATIVE: CASE EVENT DATE: 2015
